FAERS Safety Report 5747410-8 (Version None)
Quarter: 2008Q2

REPORT INFORMATION
  Report Type: 
  Country: None (occurrence: None)
  Receive Date: 20080523
  Receipt Date: 20070301
  Transmission Date: 20081010
  Serious: No
  Sender: FDA-Public Use
  Company Number: US-ASTRAZENECA-2007UW03922

PATIENT
  Sex: Male

DRUGS (1)
  1. FOSCAVIR [Suspect]

REACTIONS (5)
  - MEDICATION ERROR [None]
  - OCCUPATIONAL EXPOSURE TO TOXIC AGENT [None]
  - OEDEMA PERIPHERAL [None]
  - PHARYNGOLARYNGEAL PAIN [None]
  - SKIN IRRITATION [None]
